FAERS Safety Report 6201329-7 (Version None)
Quarter: 2009Q2

REPORT INFORMATION
  Report Type: 
  Country: None (occurrence: None)
  Receive Date: 20090526
  Receipt Date: 20090515
  Transmission Date: 20091009
  Serious: Yes (Other)
  Sender: FDA-Public Use
  Company Number: PHHY2009DE18858

PATIENT
  Age: 54 Year
  Sex: Female

DRUGS (2)
  1. AREDIA [Suspect]
     Indication: BREAST CANCER
     Dosage: 90 MG, EVERY 4 WEEKS
     Route: 042
  2. ALENDRONATE SODIUM [Concomitant]
     Dosage: UNK
     Dates: start: 20060701

REACTIONS (2)
  - OSTEONECROSIS [None]
  - STOMATITIS NECROTISING [None]
